FAERS Safety Report 16653867 (Version 1)
Quarter: 2019Q3

REPORT INFORMATION
  Report Type: Spontaneous
  Country: US (occurrence: US)
  Receive Date: 20190731
  Receipt Date: 20190731
  Transmission Date: 20191004
  Serious: Yes (Other)
  Sender: FDA-Public Use
  Company Number: US-JNJFOC-20190739346

PATIENT
  Age: 22 Year
  Sex: Female

DRUGS (2)
  1. LEXAPRO [Concomitant]
     Active Substance: ESCITALOPRAM OXALATE
     Indication: ANXIETY
     Dosage: 5 MG OR 10 MG
  2. TOPAMAX [Suspect]
     Active Substance: TOPIRAMATE
     Indication: MIGRAINE
     Dosage: LOWEST DOSE INDICATED FOR MIGRAINES
     Route: 048
     Dates: start: 201907

REACTIONS (1)
  - Oesophageal ulcer [Not Recovered/Not Resolved]

NARRATIVE: CASE EVENT DATE: 201907
